FAERS Safety Report 19447003 (Version 1)
Quarter: 2021Q2

REPORT INFORMATION
  Report Type: Spontaneous
  Country: US (occurrence: US)
  Receive Date: 20210622
  Receipt Date: 20210622
  Transmission Date: 20210717
  Serious: No
  Sender: FDA-Public Use
  Company Number: US-HIKMA PHARMACEUTICALS USA INC.-US-H14001-20-05158

PATIENT
  Age: 78 Year
  Sex: Female
  Weight: 58.96 kg

DRUGS (1)
  1. FLUTICASONE. [Suspect]
     Active Substance: FLUTICASONE
     Indication: SINUSITIS
     Dosage: ONCE IN THE MORNING AND ONCE AT NIGHT
     Route: 045

REACTIONS (3)
  - Rash macular [Not Recovered/Not Resolved]
  - Incorrect product administration duration [Unknown]
  - Therapeutic response unexpected [Unknown]
